FAERS Safety Report 6315996-0 (Version None)
Quarter: 2009Q3

REPORT INFORMATION
  Report Type: 
  Country: None (occurrence: None)
  Receive Date: 20090820
  Receipt Date: 20090810
  Transmission Date: 20100115
  Serious: Yes (Hospitalization)
  Sender: FDA-Public Use
  Company Number: BR-JNJFOC-20090803416

PATIENT
  Age: 48 Year
  Sex: Male
  Weight: 57 kg

DRUGS (4)
  1. REMICADE [Suspect]
     Indication: ANKYLOSING SPONDYLITIS
     Dosage: DOSE 3 AMPOULES
     Route: 042
  2. ATENOLOL [Concomitant]
  3. FOSAMAX [Concomitant]
  4. FOLIC ACID [Concomitant]

REACTIONS (1)
  - HEART VALVE CALCIFICATION [None]
